FAERS Safety Report 5193851-X (Version None)
Quarter: 2006Q4

REPORT INFORMATION
  Report Type: 
  Country: None (occurrence: None)
  Receive Date: 20061228
  Receipt Date: 20061216
  Transmission Date: 20070319
  Serious: Yes (Hospitalization)
  Sender: FDA-Public Use
  Company Number: US-AMGEN-STX203858

PATIENT
  Sex: Male

DRUGS (2)
  1. ENBREL [Suspect]
     Indication: RHEUMATOID ARTHRITIS
     Route: 058
     Dates: start: 20060915
  2. METHOTREXATE [Concomitant]
     Route: 065
     Dates: start: 20060601

REACTIONS (5)
  - DIVERTICULITIS [None]
  - ENTEROVESICAL FISTULA [None]
  - FISTULA [None]
  - HOSPITALISATION [None]
  - UPPER RESPIRATORY TRACT INFECTION [None]
